FAERS Safety Report 16936902 (Version 2)
Quarter: 2020Q1

REPORT INFORMATION
  Report Type: Report from Study
  Country: None (occurrence: BE)
  Receive Date: 20191018
  Receipt Date: 20200330
  Transmission Date: 20200409
  Serious: No
  Sender: FDA-Public Use
  Company Number: BE-ABBVIE-19K-013-2964227-00

PATIENT
  Sex: Male

DRUGS (5)
  1. DUODOPA [Suspect]
     Active Substance: CARBIDOPA\LEVODOPA
     Indication: PARKINSON^S DISEASE
     Route: 050
     Dates: start: 20190211, end: 20190220
  2. DUODOPA [Suspect]
     Active Substance: CARBIDOPA\LEVODOPA
     Dosage: MD=5ML, CD=1.8ML/HR DURING 16HRS, ED=1.8ML
     Route: 050
     Dates: start: 2019
  3. DUODOPA [Suspect]
     Active Substance: CARBIDOPA\LEVODOPA
     Dosage: MD=4ML, CD=1.5ML/HR DURING 16HRS, ED=1.5ML
     Route: 050
     Dates: start: 20190220, end: 20190802
  4. ASAFLOW [Concomitant]
     Active Substance: ASPIRIN
     Indication: PRODUCT USED FOR UNKNOWN INDICATION
  5. DUODOPA [Suspect]
     Active Substance: CARBIDOPA\LEVODOPA
     Dosage: MD=4ML, CD=1.7ML/HR DURING 16HRS, ED=1.8ML
     Route: 050
     Dates: start: 20190802, end: 2019

REACTIONS (3)
  - Diarrhoea [Unknown]
  - Nausea [Unknown]
  - Cystitis [Unknown]
